FAERS Safety Report 12645049 (Version 1)
Quarter: 2016Q3

REPORT INFORMATION
  Report Type: Spontaneous
  Country: NL (occurrence: NL)
  Receive Date: 20160811
  Receipt Date: 20160811
  Transmission Date: 20161109
  Serious: Yes (Other)
  Sender: FDA-Public Use
  Company Number: NL-GILEAD-2016-0226652

PATIENT
  Sex: Male

DRUGS (2)
  1. STRIBILD [Suspect]
     Active Substance: COBICISTAT\ELVITEGRAVIR\EMTRICITABINE\TENOFOVIR DISOPROXIL FUMARATE
     Indication: HIV INFECTION
     Dosage: UNK
     Route: 048
  2. METHYLENEDIOXYMETHAMPHETAMINE [Concomitant]
     Active Substance: METHYLENEDIOXYMETHAMPHETAMINE
     Dosage: UNK
     Route: 048
     Dates: start: 20160719

REACTIONS (5)
  - Malaise [Unknown]
  - Diarrhoea [Unknown]
  - Drug tolerance decreased [Unknown]
  - Substance use [Unknown]
  - Tinnitus [Unknown]

NARRATIVE: CASE EVENT DATE: 20160719
